FAERS Safety Report 21490221 (Version 1)
Quarter: 2022Q4

REPORT INFORMATION
  Report Type: Report from Study
  Country: EG (occurrence: EG)
  Receive Date: 20221021
  Receipt Date: 20221021
  Transmission Date: 20230113
  Serious: Yes (Hospitalization, Other)
  Sender: FDA-Public Use
  Company Number: EG-NOVARTISPH-NVSC2022EG234907

PATIENT
  Age: 70 Year
  Sex: Male

DRUGS (3)
  1. ENTRESTO [Suspect]
     Active Substance: SACUBITRIL\VALSARTAN
     Indication: Cardiac failure
     Dosage: 1 DOSAGE FORM, BID (ONE TABLET OF ENTRESTO 100 MG TWICE DAILY)
     Route: 048
     Dates: start: 201706
  2. PLAVIX [Concomitant]
     Active Substance: CLOPIDOGREL BISULFATE
     Indication: Anticoagulant therapy
     Dosage: 1 DOSAGE FORM, QD
     Route: 048
     Dates: start: 2010
  3. EXAMIDE [Concomitant]
     Indication: Diuretic therapy
     Dosage: 1 DOSAGE FORM, QD
     Route: 048
     Dates: start: 2010

REACTIONS (3)
  - Pulmonary oedema [Recovered/Resolved]
  - Hypotension [Not Recovered/Not Resolved]
  - Blood cholesterol increased [Unknown]

NARRATIVE: CASE EVENT DATE: 20170601
